FAERS Safety Report 20997794 (Version 1)
Quarter: 2022Q2

REPORT INFORMATION
  Report Type: Spontaneous
  Country: IL (occurrence: IL)
  Receive Date: 20220623
  Receipt Date: 20220623
  Transmission Date: 20220721
  Serious: Yes (Other)
  Sender: FDA-Public Use
  Company Number: IL-PFIZER INC-PV202200003533

PATIENT
  Age: 62 Year
  Sex: Male

DRUGS (1)
  1. XELJANZ [Suspect]
     Active Substance: TOFACITINIB CITRATE
     Indication: Psoriatic arthropathy
     Dosage: 5MG ONCE EVERY TWO DAYS (DAILY YES, DAY NO, INTERMITTENTLY)

REACTIONS (5)
  - Weight decreased [Unknown]
  - Poor quality product administered [Unknown]
  - Increased appetite [Unknown]
  - Libido increased [Unknown]
  - Off label use [Unknown]
